FAERS Safety Report 19071807 (Version 1)
Quarter: 2021Q1

REPORT INFORMATION
  Report Type: Spontaneous
  Country: GB (occurrence: GB)
  Receive Date: 20210330
  Receipt Date: 20210330
  Transmission Date: 20210420
  Serious: Yes (Other)
  Sender: FDA-Public Use
  Company Number: GB-B.BRAUN MEDICAL INC.-2108579

PATIENT
  Age: 57 Year
  Sex: Male

DRUGS (11)
  1. ASTRAZENECA COVID?19 VACCINE [Concomitant]
     Active Substance: AZD-1222
  2. LOSARTAN. [Concomitant]
     Active Substance: LOSARTAN
  3. IBUPROFEN. [Concomitant]
     Active Substance: IBUPROFEN
  4. ESCITALOPRAM [Concomitant]
     Active Substance: ESCITALOPRAM OXALATE
  5. AMBROXOL HYDROCHLORIDE [Concomitant]
     Active Substance: AMBROXOL HYDROCHLORIDE
  6. AMLODIPINE [Concomitant]
     Active Substance: AMLODIPINE BESYLATE
  7. CODEINE [Concomitant]
     Active Substance: CODEINE
  8. ACETAMINOPHEN. [Suspect]
     Active Substance: ACETAMINOPHEN
  9. ALG [Concomitant]
  10. ETANERCEPT [Concomitant]
     Active Substance: ETANERCEPT
  11. LANZOPRAZOLE [Concomitant]
     Active Substance: LANSOPRAZOLE

REACTIONS (3)
  - Lymphadenopathy [None]
  - Hypertension [None]
  - Hyperhidrosis [None]
